FAERS Safety Report 8786157 (Version 1)
Quarter: 2012Q4

REPORT INFORMATION
  Report Type: 
  Country: US (occurrence: US)
  Receive Date: 20120914
  Receipt Date: 20120914
  Transmission Date: 20130627
  Serious: Yes (Congenital Anomaly)
  Sender: FDA-Public Use
  Company Number: US-TEVA-358543USA

PATIENT
  Sex: Female

DRUGS (2)
  1. TOPIRAMATE [Suspect]
     Route: 064
  2. CEPHADYN [Concomitant]
     Indication: MIGRAINE
     Dosage: prn
     Route: 064

REACTIONS (2)
  - Congenital scoliosis [Unknown]
  - Ventricular septal defect [Unknown]
